FAERS Safety Report 6294240-7 (Version None)
Quarter: 2009Q3

REPORT INFORMATION
  Report Type: 
  Country: None (occurrence: None)
  Receive Date: 20090803
  Receipt Date: 20090331
  Transmission Date: 20100115
  Serious: No
  Sender: FDA-Public Use
  Company Number: A0776367A

PATIENT
  Age: 20 Year
  Sex: Male

DRUGS (2)
  1. NICORETTE [Suspect]
     Dates: start: 20090321
  2. NICORETTE [Suspect]
     Dates: start: 20090321

REACTIONS (1)
  - ABDOMINAL PAIN UPPER [None]
